FAERS Safety Report 12275695 (Version 7)
Quarter: 2017Q1

REPORT INFORMATION
  Report Type: Spontaneous
  Country: US (occurrence: US)
  Receive Date: 20160418
  Receipt Date: 20170330
  Transmission Date: 20170428
  Serious: Yes (Other)
  Sender: FDA-Public Use
  Company Number: US-ROCHE-1740533

PATIENT
  Age: 90 Year
  Sex: Male

DRUGS (6)
  1. ESBRIET [Suspect]
     Active Substance: PIRFENIDONE
     Indication: IDIOPATHIC PULMONARY FIBROSIS
     Route: 048
     Dates: start: 20160120
  2. METAMUCIL [Concomitant]
     Active Substance: PLANTAGO SEED
  3. TAMSULOSIN [Concomitant]
     Active Substance: TAMSULOSIN
  4. LATANOPROST. [Concomitant]
     Active Substance: LATANOPROST
  5. SIMVASTATIN. [Concomitant]
     Active Substance: SIMVASTATIN
  6. DORZOLAMIDE [Concomitant]
     Active Substance: DORZOLAMIDE

REACTIONS (8)
  - Weight decreased [Unknown]
  - Contusion [Unknown]
  - Asthenia [Unknown]
  - Constipation [Unknown]
  - Fatigue [Unknown]
  - Rhinitis [Recovering/Resolving]
  - Rhinorrhoea [Unknown]
  - Dry mouth [Unknown]

NARRATIVE: CASE EVENT DATE: 20160407
